FAERS Safety Report 6912789-8 (Version None)
Quarter: 2010Q3

REPORT INFORMATION
  Report Type: 
  Country: None (occurrence: None)
  Receive Date: 20100806
  Receipt Date: 20081208
  Transmission Date: 20110219
  Serious: No
  Sender: FDA-Public Use
  Company Number: US-PFIZER INC-2008082337

PATIENT
  Sex: Male
  Weight: 111.4 kg

DRUGS (4)
  1. DETROL LA [Suspect]
     Indication: URINARY INCONTINENCE
     Dates: start: 20080901
  2. ACETYLSALICYLIC ACID SRT [Concomitant]
  3. ALL OTHER THERAPEUTIC PRODUCTS [Concomitant]
  4. TAMSULOSIN HCL [Concomitant]
     Dates: end: 20080901

REACTIONS (1)
  - DRUG INEFFECTIVE [None]
